FAERS Safety Report 7622442-3 (Version None)
Quarter: 2011Q3

REPORT INFORMATION
  Report Type: 
  Country: None (occurrence: None)
  Receive Date: 20110718
  Receipt Date: 20110718
  Transmission Date: 20111222
  Serious: No
  Sender: FDA-Public Use
  Company Number: None

PATIENT
  Age: 83 Year
  Sex: Female

DRUGS (8)
  1. SEREVENT [Concomitant]
  2. WARFARIN SODIUM [Concomitant]
  3. FENTANYL [Concomitant]
  4. METOPROLOL TARTRATE [Concomitant]
  5. REVLIMID [Suspect]
     Indication: MULTIPLE MYELOMA
     Dosage: 10MG QDX21D/28D ORALLY
     Route: 048
     Dates: start: 20110124, end: 20110606
  6. DECADRIN [Concomitant]
  7. QVAR 40 [Concomitant]
  8. AREDIA [Concomitant]

REACTIONS (2)
  - THROMBOCYTOPENIA [None]
  - NEUTROPENIA [None]
